FAERS Safety Report 22285667 (Version 1)
Quarter: 2023Q2

REPORT INFORMATION
  Report Type: Report from Study
  Country: US (occurrence: US)
  Receive Date: 20230504
  Receipt Date: 20230504
  Transmission Date: 20230722
  Serious: Yes (Other)
  Sender: FDA-Public Use
  Company Number: US-GILEAD-2023-0626448

PATIENT
  Age: 10 Year
  Sex: Male
  Weight: 95 kg

DRUGS (15)
  1. REMDESIVIR [Suspect]
     Active Substance: REMDESIVIR
     Indication: COVID-19
     Dosage: 200 MG, ONCE
     Route: 065
  2. REMDESIVIR [Suspect]
     Active Substance: REMDESIVIR
     Dosage: 100 MG, QD
     Route: 065
  3. FUROSEMIDE [Concomitant]
     Active Substance: FUROSEMIDE
     Indication: Pulmonary oedema
  4. OXYGEN [Concomitant]
     Active Substance: OXYGEN
     Dosage: NC ON ADMISSION
  5. OXYGEN [Concomitant]
     Active Substance: OXYGEN
     Dosage: INTUBATED
  6. OXYGEN [Concomitant]
     Active Substance: OXYGEN
     Dosage: HFNC BY DAY 19 THEN WEANED OFF
  7. EPINEPHRINE [Concomitant]
     Active Substance: EPINEPHRINE
     Indication: Hypotension
  8. DEXMEDETOMIDINE [Concomitant]
     Active Substance: DEXMEDETOMIDINE
     Indication: Agitation
  9. KETAMINE [Concomitant]
     Active Substance: KETAMINE
     Indication: Endotracheal intubation
  10. SUXAMETHONIUM CHL [Concomitant]
     Indication: Endotracheal intubation
  11. HYDROXYCHLOROQUINE [Concomitant]
     Active Substance: HYDROXYCHLOROQUINE
     Indication: COVID-19
  12. ZINC [Concomitant]
     Active Substance: ZINC
     Indication: COVID-19
  13. HEPARIN [Concomitant]
     Active Substance: HEPARIN SODIUM
     Dosage: STOPPED DAY 2 ADMISSION
  14. MILRINONE [Concomitant]
     Active Substance: MILRINONE
     Indication: Cardiac failure acute
  15. ENOXAPARIN SODIUM [Concomitant]
     Active Substance: ENOXAPARIN SODIUM

REACTIONS (10)
  - Pulmonary vascular resistance abnormality [Recovered/Resolved]
  - Diabetes insipidus [Unknown]
  - Pneumonia staphylococcal [Recovered/Resolved]
  - Haemodynamic instability [Recovered/Resolved]
  - Drug ineffective [Recovered/Resolved]
  - Hypoxia [Recovered/Resolved]
  - Hypercapnia [Recovered/Resolved]
  - Blood sodium abnormal [Recovered/Resolved]
  - PaO2/FiO2 ratio decreased [Recovered/Resolved]
  - Off label use [Recovered/Resolved]
